FAERS Safety Report 11454635 (Version 1)
Quarter: 2015Q3

REPORT INFORMATION
  Report Type: Spontaneous
  Country: US (occurrence: US)
  Receive Date: 20150831
  Receipt Date: 20150831
  Transmission Date: 20151125
  Serious: Yes (Other)
  Sender: FDA-Public Use
  Company Number: US-ELI_LILLY_AND_COMPANY-US201004007313

PATIENT
  Age: 55 Year
  Sex: Female

DRUGS (19)
  1. CYMBALTA [Suspect]
     Active Substance: DULOXETINE HYDROCHLORIDE
     Dosage: 30 MG, DAILY (1/D)
  2. ALBUTEROL. [Concomitant]
     Active Substance: ALBUTEROL
  3. NOVOLOG [Concomitant]
     Active Substance: INSULIN ASPART
  4. K-DUR [Concomitant]
     Active Substance: POTASSIUM CHLORIDE
  5. PLAVIX [Concomitant]
     Active Substance: CLOPIDOGREL BISULFATE
  6. ZETIA [Concomitant]
     Active Substance: EZETIMIBE
  7. ATROVENT [Concomitant]
     Active Substance: IPRATROPIUM BROMIDE
  8. DILANTIN [Concomitant]
     Active Substance: PHENYTOIN
  9. LANTUS [Concomitant]
     Active Substance: INSULIN GLARGINE
  10. DELTASONE [Concomitant]
     Active Substance: PREDNISONE
  11. ZOCOR [Concomitant]
     Active Substance: SIMVASTATIN
  12. CYMBALTA [Suspect]
     Active Substance: DULOXETINE HYDROCHLORIDE
     Indication: DEPRESSION
     Dosage: 60 MG, EACH MORNING
  13. CYMBALTA [Suspect]
     Active Substance: DULOXETINE HYDROCHLORIDE
     Dosage: 30 MG, DAILY (1/D)
  14. COZAAR [Concomitant]
     Active Substance: LOSARTAN POTASSIUM
  15. TOPAMAX [Concomitant]
     Active Substance: TOPIRAMATE
  16. NEXIUM [Concomitant]
     Active Substance: ESOMEPRAZOLE MAGNESIUM
  17. HEPARIN [Concomitant]
     Active Substance: HEPARIN SODIUM
     Route: 058
  18. METHOTREXATE [Concomitant]
     Active Substance: METHOTREXATE
  19. LASIX [Concomitant]
     Active Substance: FUROSEMIDE

REACTIONS (1)
  - Seizure [Recovered/Resolved]
